FAERS Safety Report 5142754-5 (Version None)
Quarter: 2006Q4

REPORT INFORMATION
  Report Type: 
  Country: None (occurrence: None)
  Receive Date: 20061102
  Receipt Date: 20061025
  Transmission Date: 20070319
  Serious: Yes (Other)
  Sender: FDA-Public Use
  Company Number: 2006UW20771

PATIENT
  Age: 47 Year
  Sex: Male

DRUGS (2)
  1. SEROQUEL [Suspect]
     Route: 048
  2. DIGOXIN [Suspect]

REACTIONS (4)
  - BRADYCARDIA [None]
  - EXTRASYSTOLES [None]
  - INTENTIONAL OVERDOSE [None]
  - VENTRICULAR ARRHYTHMIA [None]
